FAERS Safety Report 14519419 (Version 1)
Quarter: 2018Q1

REPORT INFORMATION
  Report Type: Spontaneous
  Country: US (occurrence: US)
  Receive Date: 20180209
  Receipt Date: 20180209
  Transmission Date: 20180509
  Serious: Yes (Hospitalization)
  Sender: FDA-Public Use
  Company Number: None

PATIENT
  Age: 45 Year
  Sex: Female
  Weight: 48.6 kg

DRUGS (1)
  1. TAMIFLU [Suspect]
     Active Substance: OSELTAMIVIR PHOSPHATE
     Indication: ANTIVIRAL PROPHYLAXIS
     Dosage: ?          QUANTITY:2 TABLET(S);?
     Route: 048

REACTIONS (3)
  - Visual impairment [None]
  - Vertigo [None]
  - Dizziness [None]

NARRATIVE: CASE EVENT DATE: 20180208
